FAERS Safety Report 10344162 (Version 1)
Quarter: 2014Q3

REPORT INFORMATION
  Report Type: Spontaneous
  Country: GB (occurrence: None)
  Receive Date: 20140724
  Receipt Date: 20140724
  Transmission Date: 20150326
  Serious: Yes (Hospitalization)
  Sender: FDA-Public Use
  Company Number: GB-H14001-14-00276

PATIENT
  Sex: Male

DRUGS (3)
  1. AUGMENTIN [Suspect]
     Active Substance: AMOXICILLIN\CLAVULANATE POTASSIUM
     Indication: PRODUCT USED FOR UNKNOWN INDICATION
     Dates: start: 2010
  2. PARACETAMOL [Concomitant]
     Active Substance: ACETAMINOPHEN
  3. BUTRANS [Concomitant]
     Active Substance: BUPRENORPHINE

REACTIONS (3)
  - Asthma [None]
  - Lower respiratory tract infection [None]
  - Anaphylactic shock [None]

NARRATIVE: CASE EVENT DATE: 2010
